FAERS Safety Report 17237203 (Version 1)
Quarter: 2020Q1

REPORT INFORMATION
  Report Type: Spontaneous
  Country: US (occurrence: US)
  Receive Date: 20200106
  Receipt Date: 20200106
  Transmission Date: 20200409
  Serious: Yes (Life-Threatening)
  Sender: FDA-Public Use
  Company Number: US-MYLANLABS-2020M1000795

PATIENT
  Age: 78 Year
  Sex: Male

DRUGS (1)
  1. HEPARIN [Suspect]
     Active Substance: HEPARIN SODIUM
     Indication: ANTICOAGULANT THERAPY
     Dosage: HE WAS FULLY ANTICOAGULATED..
     Route: 065

REACTIONS (3)
  - Respiratory tract oedema [Recovering/Resolving]
  - Respiratory distress [Recovering/Resolving]
  - Haematoma [Recovering/Resolving]
